FAERS Safety Report 7526578-7 (Version None)
Quarter: 2011Q2

REPORT INFORMATION
  Report Type: 
  Country: None (occurrence: None)
  Receive Date: 20110606
  Receipt Date: 20110523
  Transmission Date: 20111010
  Serious: Yes (Other)
  Sender: FDA-Public Use
  Company Number: US-JNJFOC-20110510831

PATIENT
  Sex: Female

DRUGS (5)
  1. SYNTHROID [Concomitant]
     Indication: THYROID DISORDER
     Route: 065
  2. TYLENOL W/ CODEINE NO. 3 [Concomitant]
     Indication: THYROID DISORDER
     Route: 065
  3. LAMICTAL [Concomitant]
     Indication: BIPOLAR DISORDER
     Route: 065
  4. LISTERINE ORIGINAL [Suspect]
     Indication: ALCOHOL USE
     Route: 048
  5. VYVANSE [Concomitant]
     Indication: ATTENTION DEFICIT/HYPERACTIVITY DISORDER
     Route: 065

REACTIONS (3)
  - OFF LABEL USE [None]
  - INCORRECT ROUTE OF DRUG ADMINISTRATION [None]
  - DRUG ABUSE [None]
